FAERS Safety Report 21655311 (Version 7)
Quarter: 2023Q2

REPORT INFORMATION
  Report Type: Spontaneous
  Country: CO (occurrence: CO)
  Receive Date: 20221129
  Receipt Date: 20230627
  Transmission Date: 20230722
  Serious: Yes (Hospitalization, Other)
  Sender: FDA-Public Use
  Company Number: CO-HORIZON THERAPEUTICS-HZN-2022-009167

PATIENT

DRUGS (24)
  1. INTERFERON GAMMA-1B [Suspect]
     Active Substance: INTERFERON GAMMA-1B
     Indication: Immunodeficiency congenital
     Dosage: 100MCG INJECTABLE SOLUTION VIAL X 0,5 ML (25 MCG,1 IN EVERY 72 HOURS), ON MONDAY-WEDNESDAY-FRIDAY
     Route: 058
     Dates: start: 202210
  2. TRIMETHOPRIM SULFATE [Concomitant]
     Active Substance: TRIMETHOPRIM SULFATE
     Indication: Prophylaxis
     Dosage: 80/400 MG (1 IN 72 HR)
     Route: 048
  3. TRIMETHOPRIM SULFATE [Concomitant]
     Active Substance: TRIMETHOPRIM SULFATE
     Dosage: EVERY 24 H FOR 24H; EVERY OTHER DAY (95 MG)
     Route: 042
  4. PREDNISOLONE [Concomitant]
     Active Substance: PREDNISOLONE
     Indication: Product used for unknown indication
     Route: 065
  5. CEFEPIME [Concomitant]
     Active Substance: CEFEPIME HYDROCHLORIDE
     Indication: Antibiotic prophylaxis
     Dosage: 300 MG (100 MG,1 IN 8 HR)
     Route: 042
  6. METRONIDAZOLE [Concomitant]
     Active Substance: METRONIDAZOLE
     Indication: Antibiotic prophylaxis
     Dosage: 600 MG (200 MG,1 IN 8 HR)
     Route: 048
  7. METRONIDAZOLE [Concomitant]
     Active Substance: METRONIDAZOLE
     Dosage: 270 MG (90 MG,1 IN 8 HR)
     Route: 042
  8. MEROPENEM [Concomitant]
     Active Substance: MEROPENEM
     Indication: Antibiotic therapy
     Dosage: 1140 MG (380 MG,1 IN 8 HR)
     Route: 042
  9. ISONIAZID [Concomitant]
     Active Substance: ISONIAZID
     Indication: Intestinal tuberculosis
     Route: 065
  10. RIFAMPIN [Concomitant]
     Active Substance: RIFAMPIN
     Indication: Intestinal tuberculosis
     Route: 065
  11. ETAMBUTOL [ETHAMBUTOL] [Concomitant]
     Indication: Intestinal tuberculosis
     Route: 065
  12. VORICONAZOLE [Concomitant]
     Active Substance: VORICONAZOLE
     Indication: Prophylaxis
     Dosage: 300 MG (150 MG,1 IN 12 HR)
     Route: 048
  13. VORICONAZOLE [Concomitant]
     Active Substance: VORICONAZOLE
     Dosage: 400 MG (200 MG,1 IN 12 HR)
     Route: 048
  14. VORICONAZOLE [Concomitant]
     Active Substance: VORICONAZOLE
     Dosage: 300 MG (150 MG,1 IN 12 HR)
     Route: 048
     Dates: start: 20221004
  15. BUTYLSCOPOLAMINE [Concomitant]
     Active Substance: BUTYLSCOPOLAMINE
     Indication: Pain
     Dosage: 30 MG (10 MG,1 IN 8 HR)
     Route: 042
  16. POTASSIUM CHLORIDE [Concomitant]
     Active Substance: POTASSIUM CHLORIDE
     Indication: Product used for unknown indication
     Dosage: 4.5 ML (4.5 ML,1 IN 24 HR)
     Route: 042
  17. MESALAMINE [Concomitant]
     Active Substance: MESALAMINE
     Indication: Product used for unknown indication
     Dosage: 1500 MG (500 MG,1 IN 8 HR)
     Route: 048
  18. FOLIC ACID [Concomitant]
     Active Substance: FOLIC ACID
     Indication: Crohn^s disease
     Dosage: 1 MG (1 MG,1 IN 24 HR)
     Route: 048
  19. LEVOFLOXACIN [Concomitant]
     Active Substance: LEVOFLOXACIN
     Indication: Product used for unknown indication
     Dosage: 300 MG (300 MG,1 IN 24 HR)
     Route: 048
  20. PYRAZINAMIDE [Concomitant]
     Active Substance: PYRAZINAMIDE
     Indication: Intestinal tuberculosis
     Route: 065
  21. BEDAQUILINE [Concomitant]
     Active Substance: BEDAQUILINE
     Indication: Product used for unknown indication
     Dosage: 200 MG (200 MG,1 IN 24 HR)
     Route: 048
  22. CLOFAZIMINE [Concomitant]
     Active Substance: CLOFAZIMINE
     Indication: Product used for unknown indication
     Dosage: 50 MG (50 MG,1 IN 24 HR)
     Route: 048
  23. LINEZOLID [Concomitant]
     Active Substance: LINEZOLID
     Indication: Product used for unknown indication
     Dosage: 200 MG (200 MG,1 IN 1 D)
     Route: 048
  24. ACETAMINOPHEN [Concomitant]
     Active Substance: ACETAMINOPHEN
     Indication: Product used for unknown indication
     Dosage: 800 MG (200 MG,1 IN 6 HR)
     Route: 048

REACTIONS (2)
  - Intestinal obstruction [Recovered/Resolved]
  - Off label use [Unknown]

NARRATIVE: CASE EVENT DATE: 20221001
